FAERS Safety Report 9617418 (Version 1)
Quarter: 2013Q4

REPORT INFORMATION
  Report Type: Spontaneous
  Country: GR (occurrence: GR)
  Receive Date: 20131011
  Receipt Date: 20131011
  Transmission Date: 20140711
  Serious: Yes (Other)
  Sender: FDA-Public Use
  Company Number: PHHY2013GR113604

PATIENT
  Age: 50 Year
  Sex: Male

DRUGS (5)
  1. CICLOSPORIN [Suspect]
     Dosage: 4 MG/KG, DAILY
  2. METHOTREXATE SODIUM [Suspect]
     Dosage: 15 MG, WEEKLY
  3. COVERSYL                                /FRA/ [Concomitant]
     Indication: HYPERTENSION
  4. SALOSPIR [Concomitant]
     Indication: HYPERTENSION
  5. NORMELL [Concomitant]
     Indication: DIABETES MELLITUS

REACTIONS (3)
  - Psoriatic arthropathy [Unknown]
  - Hypertension [Unknown]
  - Drug ineffective [Unknown]
